FAERS Safety Report 10026097 (Version 3)
Quarter: 2014Q2

REPORT INFORMATION
  Report Type: Spontaneous
  Country: GR (occurrence: GR)
  Receive Date: 20140320
  Receipt Date: 20140621
  Transmission Date: 20141212
  Serious: Yes (Hospitalization, Other)
  Sender: FDA-Public Use
  Company Number: GR-ABBVIE-14P-066-1214917-00

PATIENT
  Age: 86 Year
  Sex: Female

DRUGS (8)
  1. DEPAKINE [Suspect]
     Indication: EPILEPSY
     Dates: start: 2009
  2. DEPAKINE [Suspect]
     Dates: start: 2009, end: 2013
  3. DEPAKINE [Suspect]
     Dates: start: 20140308
  4. DEPAKINE CHRONO [Suspect]
     Indication: PRODUCT USED FOR UNKNOWN INDICATION
     Route: 048
  5. MICARDIS [Concomitant]
     Indication: PRODUCT USED FOR UNKNOWN INDICATION
  6. COVERSYL [Concomitant]
     Indication: PRODUCT USED FOR UNKNOWN INDICATION
  7. MICARDIS PLUS [Concomitant]
     Indication: PRODUCT USED FOR UNKNOWN INDICATION
     Dates: start: 20140612
  8. LYRICA [Concomitant]
     Indication: PRODUCT USED FOR UNKNOWN INDICATION

REACTIONS (13)
  - Fall [Unknown]
  - Haematoma [Unknown]
  - Psychotic disorder [Unknown]
  - Ataxia [Unknown]
  - Clavicle fracture [Unknown]
  - Lumbar vertebral fracture [Unknown]
  - Epilepsy [Unknown]
  - Pollakiuria [Unknown]
  - Apathy [Unknown]
  - Drug dose omission [Unknown]
  - Hypertension [Unknown]
  - Abdominal distension [Unknown]
  - Peripheral swelling [Unknown]
